FAERS Safety Report 14996888 (Version 1)
Quarter: 2018Q2

REPORT INFORMATION
  Report Type: Spontaneous
  Country: ES (occurrence: ES)
  Receive Date: 20180611
  Receipt Date: 20180611
  Transmission Date: 20180711
  Serious: Yes (Other)
  Sender: FDA-Public Use
  Company Number: ES-LANNETT COMPANY, INC.-ES-2018LAN000731

PATIENT
  Age: 14 Year
  Sex: Female

DRUGS (10)
  1. CYCLOPHOSPHAMIDE. [Suspect]
     Active Substance: CYCLOPHOSPHAMIDE
     Indication: EWING^S SARCOMA
     Dosage: 1500 MG/M2, DAY 1  [EIGHT CYCLES]
     Route: 042
     Dates: start: 200910
  2. ETOPOSIDE. [Suspect]
     Active Substance: ETOPOSIDE
     Indication: EWING^S SARCOMA
     Dosage: 150 MG/M2, DAYS 1?3   [SIX CYCLES]
     Dates: start: 200904
  3. IFOSFAMIDE. [Suspect]
     Active Substance: IFOSFAMIDE
     Indication: EWING^S SARCOMA
     Dosage: 3000 MG/M2, (DAYS 1?3)  [SIX CYCLES]
     Route: 042
     Dates: start: 200904
  4. BEVACIZUMAB. [Suspect]
     Active Substance: BEVACIZUMAB
     Indication: EWING^S SARCOMA
     Dosage: 350 MG/M2,  [FIVE CYCLES]
     Route: 042
     Dates: start: 201004
  5. VINCRISTINE [Suspect]
     Active Substance: VINCRISTINE
     Dosage: 1.5 MG/M2, DAY 1  [EIGHT CYCLES]
     Route: 042
     Dates: start: 200910
  6. TEMOZOLOMIDE. [Suspect]
     Active Substance: TEMOZOLOMIDE
     Indication: EWING^S SARCOMA
     Dosage: 100 MG/M2, DAYS 1?21  [FIVE CYCLES]
     Route: 048
     Dates: start: 201004
  7. DOXORUBICIN [Suspect]
     Active Substance: DOXORUBICIN
     Indication: EWING^S SARCOMA
     Dosage: 20 MG/M2, DAYS 1?3  [SIX CYCLES]
     Route: 042
     Dates: start: 200904
  8. IRINOTECAN [Suspect]
     Active Substance: IRINOTECAN
     Indication: EWING^S SARCOMA
     Dosage: 20 MG/M2, DAYS 1?5 AND 8?13  [FIVE CYCLES]
     Route: 042
     Dates: start: 201004
  9. ACTINOMYCIN D [Suspect]
     Active Substance: DACTINOMYCIN
     Indication: EWING^S SARCOMA
     Dosage: 0.75 MG/M2, DAYS 1?2  [EIGHT CYCLES]
     Route: 042
     Dates: start: 200910
  10. VINCRISTINE [Suspect]
     Active Substance: VINCRISTINE
     Indication: EWING^S SARCOMA
     Dosage: 1.5 MG/M2, (DAY 1)  [SIX CYCLES]
     Route: 042
     Dates: start: 200904

REACTIONS (1)
  - Blood stem cell transplant failure [Recovered/Resolved]
